FAERS Safety Report 7144430-6 (Version None)
Quarter: 2010Q4

REPORT INFORMATION
  Report Type: 
  Country: None (occurrence: None)
  Receive Date: 20101208
  Receipt Date: 20101122
  Transmission Date: 20110411
  Serious: Yes (Other)
  Sender: FDA-Public Use
  Company Number: US-BAYER-201032692NA

PATIENT

DRUGS (1)
  1. YASMIN [Suspect]
     Route: 048
     Dates: start: 20080601, end: 20090101

REACTIONS (3)
  - DYSARTHRIA [None]
  - FACTOR V LEIDEN MUTATION [None]
  - VIITH NERVE PARALYSIS [None]
